FAERS Safety Report 6161394-2 (Version None)
Quarter: 2009Q2

REPORT INFORMATION
  Report Type: 
  Country: None (occurrence: None)
  Receive Date: 20090421
  Receipt Date: 20090415
  Transmission Date: 20091009
  Serious: Yes (Hospitalization)
  Sender: FDA-Public Use
  Company Number: US-CELGENEUS-163-21880-09041332

PATIENT
  Sex: Male
  Weight: 84 kg

DRUGS (4)
  1. REVLIMID [Suspect]
     Route: 048
     Dates: start: 20090317, end: 20090331
  2. DEXAMETHASONE TAB [Suspect]
     Route: 048
     Dates: start: 20090317, end: 20090328
  3. BORTEZOMIB [Suspect]
     Route: 051
     Dates: start: 20090317, end: 20090403
  4. ASPIRIN [Concomitant]
     Route: 048

REACTIONS (2)
  - COLITIS [None]
  - LOWER GASTROINTESTINAL HAEMORRHAGE [None]
